FAERS Safety Report 6915500-X (Version None)
Quarter: 2010Q3

REPORT INFORMATION
  Report Type: 
  Country: None (occurrence: None)
  Receive Date: 20100804
  Receipt Date: 20100722
  Transmission Date: 20110219
  Serious: Yes (Other)
  Sender: FDA-Public Use
  Company Number: 7012073

PATIENT
  Age: 59 Year
  Sex: Female

DRUGS (1)
  1. REBIF [Suspect]
     Indication: MULTIPLE SCLEROSIS
     Dosage: 44 MCG, 3 IN 1 WK, SUBCUTANEOUS
     Route: 058
     Dates: start: 20000109, end: 20100601

REACTIONS (6)
  - CONTUSION [None]
  - DEPRESSION [None]
  - MULTIPLE SCLEROSIS RELAPSE [None]
  - OEDEMA PERIPHERAL [None]
  - RETINAL DETACHMENT [None]
  - VITREOUS FLOATERS [None]
